FAERS Safety Report 20371745 (Version 3)
Quarter: 2022Q1

REPORT INFORMATION
  Report Type: Report from Study
  Country: US (occurrence: US)
  Receive Date: 20220124
  Receipt Date: 20220211
  Transmission Date: 20220423
  Serious: Yes (Other)
  Sender: FDA-Public Use
  Company Number: US-SUNOVION-2022SUN000193

PATIENT
  Age: 62 Year
  Sex: Male
  Weight: 79.365 kg

DRUGS (1)
  1. KYNMOBI [Suspect]
     Active Substance: APOMORPHINE HYDROCHLORIDE
     Dosage: 15 MG
     Route: 060
     Dates: start: 20220119

REACTIONS (8)
  - Loss of consciousness [Recovered/Resolved]
  - Syncope [Recovering/Resolving]
  - Fall [Recovered/Resolved]
  - Anxiety [Recovering/Resolving]
  - Contusion [Recovered/Resolved with Sequelae]
  - Dizziness [Recovering/Resolving]
  - Hyperhidrosis [Recovering/Resolving]
  - Swelling face [Recovering/Resolving]

NARRATIVE: CASE EVENT DATE: 20220120
